FAERS Safety Report 7376380-4 (Version None)
Quarter: 2011Q1

REPORT INFORMATION
  Report Type: 
  Country: None (occurrence: None)
  Receive Date: 20110325
  Receipt Date: 20110314
  Transmission Date: 20110831
  Serious: Yes (Other)
  Sender: FDA-Public Use
  Company Number: US-BAYER-201030157NA

PATIENT
  Sex: Female

DRUGS (13)
  1. ZYRTEC [Concomitant]
     Dosage: 10 MG, UNK
     Route: 048
     Dates: start: 20070528
  2. METRONIDAZOLE [Concomitant]
     Dosage: 75 %, UNK
     Route: 067
     Dates: start: 20070705
  3. AMITRIPTYLINE HCL [Concomitant]
     Dosage: 25 MG, UNK
     Route: 048
     Dates: start: 20061110
  4. UNCODEABLE ^UNCLASSIFIABLE^ [Concomitant]
     Dosage: UNK
     Route: 048
     Dates: start: 20061205
  5. MAXALT [Concomitant]
     Dosage: 10 MG, UNK
     Route: 048
     Dates: start: 20070205
  6. PHENAZOPYRIDINE HCL TAB [Concomitant]
     Dosage: 200 MG, UNK
     Route: 048
     Dates: start: 20061205
  7. YASMIN [Suspect]
     Indication: ORAL CONTRACEPTION
     Route: 048
     Dates: start: 20050101, end: 20090101
  8. BENZONATATE [Concomitant]
     Dosage: 200 MG, UNK
     Route: 048
     Dates: start: 20070524
  9. OCELLA [Suspect]
     Indication: ORAL CONTRACEPTION
     Route: 048
     Dates: start: 20050101, end: 20090101
  10. EFFEXOR XR [Concomitant]
     Dosage: 150 MG, UNK
     Route: 048
     Dates: start: 20041214
  11. PREDNISONE [Concomitant]
     Dosage: 50 MG, UNK
     Route: 048
     Dates: start: 20070716
  12. EFFEXOR XR [Concomitant]
     Dosage: 75 MG, UNK
     Route: 048
     Dates: start: 20060119
  13. CIPROFLOXACIN HCL [Concomitant]
     Dosage: 500 MG, UNK
     Route: 048
     Dates: start: 20070528

REACTIONS (2)
  - GALLBLADDER DISORDER [None]
  - BILIARY DYSKINESIA [None]
